FAERS Safety Report 25964517 (Version 1)
Quarter: 2025Q4

REPORT INFORMATION
  Report Type: Spontaneous
  Country: US (occurrence: None)
  Receive Date: 20251027
  Receipt Date: 20251027
  Transmission Date: 20260117
  Serious: Yes (Disabling)
  Sender: FDA-CTU
  Company Number: None

PATIENT
  Age: 70 Year
  Sex: Female
  Weight: 67.5 kg

DRUGS (1)
  1. INCLISIRAN [Suspect]
     Active Substance: INCLISIRAN
     Dates: start: 20240531, end: 20251027

REACTIONS (11)
  - Impaired quality of life [None]
  - Pain [None]
  - Insomnia [None]
  - Arthralgia [None]
  - Myalgia [None]
  - Groin pain [None]
  - Arthralgia [None]
  - Gait disturbance [None]
  - Gait disturbance [None]
  - Burning sensation [None]
  - Muscular weakness [None]

NARRATIVE: CASE EVENT DATE: 20251016
